FAERS Safety Report 4592546-0 (Version None)
Quarter: 2005Q1

REPORT INFORMATION
  Report Type: 
  Country: None (occurrence: None)
  Receive Date: 20050222
  Receipt Date: 20050204
  Transmission Date: 20050727
  Serious: Yes (Hospitalization)
  Sender: FDA-Public Use
  Company Number: MED000021

PATIENT
  Age: 33 Year
  Sex: Male
  Weight: 83.0083 kg

DRUGS (2)
  1. LACTATED RINGER'S [Suspect]
     Indication: PLASMAPHERESIS
     Dosage: ONCE, INTRAVENOUS
     Route: 042
     Dates: start: 20041221, end: 20041221
  2. SODIUM CITRATE [Suspect]
     Indication: PLASMAPHERESIS
     Dosage: ONCE; INTRAVENOUS
     Route: 042
     Dates: start: 20041221, end: 20041221

REACTIONS (15)
  - CATHETER SITE OEDEMA [None]
  - CATHETER SITE PAIN [None]
  - CATHETER SITE RELATED REACTION [None]
  - CONTUSION [None]
  - DIZZINESS [None]
  - FACE OEDEMA [None]
  - HEADACHE [None]
  - LOCALISED OEDEMA [None]
  - MYOSITIS [None]
  - NAUSEA [None]
  - PAIN [None]
  - PAIN IN EXTREMITY [None]
  - POST PROCEDURAL HAEMATOMA [None]
  - SKIN DISCOLOURATION [None]
  - VERTIGO [None]
